FAERS Safety Report 12362550 (Version 2)
Quarter: 2019Q4

REPORT INFORMATION
  Report Type: Spontaneous
  Country: US (occurrence: US)
  Receive Date: 20160512
  Receipt Date: 20191213
  Transmission Date: 20200122
  Serious: No
  Sender: FDA-Public Use
  Company Number: US-UCBSA-2015034928

PATIENT
  Age: 62 Year
  Sex: Male

DRUGS (13)
  1. ALFUZOSIN [Concomitant]
     Active Substance: ALFUZOSIN
     Indication: PROSTATIC DISORDER
     Dosage: 10 MG, ONCE DAILY (QD),1 DOSE
  2. PREDNISONE. [Concomitant]
     Active Substance: PREDNISONE
     Indication: RHEUMATOID ARTHRITIS
     Dosage: 5 MG, ONCE DAILY (QD), 1 DOSE
  3. MUCINEX [Concomitant]
     Active Substance: GUAIFENESIN
     Indication: SECRETION DISCHARGE
     Dosage: 1200 MG, ONCE DAILY (QD), 1 DOSE
  4. PREDNISONE. [Concomitant]
     Active Substance: PREDNISONE
     Dosage: 7.5 MG
  5. QVAR [Concomitant]
     Active Substance: BECLOMETHASONE DIPROPIONATE
     Indication: BRONCHITIS
     Dosage: 80 ?G, 2 PER DAY (EVERY DAY),1 DOSE
  6. VENTOLIN [Concomitant]
     Active Substance: ALBUTEROL SULFATE
     Indication: BRONCHITIS
     Dosage: 2X 4 PER DAY, IF NEEDED , OCCASIONALLY
  7. NASACORT [Concomitant]
     Active Substance: TRIAMCINOLONE ACETONIDE
     Indication: HYPERSENSITIVITY
     Dosage: UNK, 2X2 IF NEEDED, OCCASIONALLY, NASACORT ALLERGY 24 HR, 1 DOSE
  8. OLOPATADINE. [Concomitant]
     Active Substance: OLOPATADINE
     Indication: SINUSITIS
     Dosage: UNK, 2X2 IF NEEDED, OCCASIONALLY, 1 DOSE
  9. CIMZIA [Suspect]
     Active Substance: CERTOLIZUMAB PEGOL
     Indication: RHEUMATOID ARTHRITIS
     Dosage: 1 DOSE PER INTAKE; FREQUENCY (2X MONTH)
     Route: 058
  10. ESOMEPRAZOLE. [Concomitant]
     Active Substance: ESOMEPRAZOLE MAGNESIUM
     Indication: GASTROOESOPHAGEAL REFLUX DISEASE
     Dosage: 40 MG, ONCE DAILY (QD), 1 DOSE
  11. CANDESAN [Concomitant]
     Indication: BLOOD PRESSURE MEASUREMENT
     Dosage: 12.5 MG, ONCE DAILY (QD), 1 DOSE
  12. CLARITIN [Concomitant]
     Active Substance: LORATADINE
     Indication: HYPERSENSITIVITY
     Dosage: 10 MG, ONCE DAILY (QD), 1 DOSE
  13. CALCIUM + D3 [Concomitant]
     Active Substance: CALCIUM\CHOLECALCIFEROL
     Indication: BONE DISORDER
     Dosage: UNK, ONCE DAILY (QD), 1 DOSE

REACTIONS (1)
  - Myalgia [Recovered/Resolved]

NARRATIVE: CASE EVENT DATE: 201509
